FAERS Safety Report 6091611-9 (Version None)
Quarter: 2009Q1

REPORT INFORMATION
  Report Type: 
  Country: None (occurrence: None)
  Receive Date: 20090225
  Receipt Date: 20080222
  Transmission Date: 20090719
  Serious: No
  Sender: FDA-Public Use
  Company Number: A0711360A

PATIENT
  Age: 38 Year
  Sex: Female

DRUGS (3)
  1. VALTREX [Suspect]
     Dosage: 1G PER DAY
     Route: 048
     Dates: start: 20080201
  2. LUPRON [Suspect]
     Indication: ENDOMETRIOSIS
     Dosage: 1INJ VARIABLE DOSE
     Route: 030
     Dates: start: 20070101
  3. NO CONCURRENT MEDICATION [Concomitant]

REACTIONS (1)
  - GENITAL PAIN [None]
